FAERS Safety Report 5808164-X (Version None)
Quarter: 2008Q3

REPORT INFORMATION
  Report Type: 
  Country: None (occurrence: None)
  Receive Date: 20080711
  Receipt Date: 20080703
  Transmission Date: 20090109
  Serious: Yes (Hospitalization)
  Sender: FDA-Public Use
  Company Number: DE-AMGEN-UK277870

PATIENT
  Sex: Female
  Weight: 52.3 kg

DRUGS (4)
  1. NEULASTA [Suspect]
     Indication: NEUTROPENIA
     Route: 058
     Dates: start: 20080229, end: 20080313
  2. FLUOROURACIL [Concomitant]
     Route: 065
     Dates: start: 20080220
  3. EPIRUBICIN [Concomitant]
     Route: 065
     Dates: start: 20080220
  4. CYCLOPHOSPHAMIDE [Concomitant]
     Route: 065
     Dates: start: 20080220

REACTIONS (5)
  - CHEST PAIN [None]
  - HEART RATE INCREASED [None]
  - LEUKOCYTOSIS [None]
  - LEUKOPENIA [None]
  - TROPONIN INCREASED [None]
